FAERS Safety Report 12101246 (Version 4)
Quarter: 2018Q3

REPORT INFORMATION
  Report Type: Spontaneous
  Country: US (occurrence: US)
  Receive Date: 20160222
  Receipt Date: 20180829
  Transmission Date: 20181010
  Serious: Yes (Hospitalization, Other)
  Sender: FDA-Public Use
  Company Number: US-JNJFOC-20160218630

PATIENT
  Age: 79 Year
  Sex: Male

DRUGS (16)
  1. VERAPAMIL [Concomitant]
     Active Substance: VERAPAMIL HYDROCHLORIDE
     Indication: PROPHYLAXIS
     Dates: end: 201602
  2. LOPRESSOR [Concomitant]
     Active Substance: METOPROLOL TARTRATE
  3. PROSCAR [Concomitant]
     Active Substance: FINASTERIDE
  4. LASIX [Concomitant]
     Active Substance: FUROSEMIDE
  5. ATENOLOL. [Concomitant]
     Active Substance: ATENOLOL
     Indication: PROPHYLAXIS
     Dates: end: 201602
  6. ELIQUIS [Concomitant]
     Active Substance: APIXABAN
  7. IMBRUVICA [Suspect]
     Active Substance: IBRUTINIB
     Indication: NON-HODGKIN^S LYMPHOMA
     Route: 048
     Dates: start: 20151229, end: 20160212
  8. FLOMAX [Concomitant]
     Active Substance: TAMSULOSIN HYDROCHLORIDE
  9. IMBRUVICA [Suspect]
     Active Substance: IBRUTINIB
     Indication: WALDENSTROM^S MACROGLOBULINAEMIA
     Route: 048
     Dates: start: 20151229, end: 20160212
  10. HYDRODIURIL [Concomitant]
     Active Substance: HYDROCHLOROTHIAZIDE
     Indication: PROPHYLAXIS
     Dates: end: 201602
  11. CALAN [Concomitant]
     Active Substance: VERAPAMIL HYDROCHLORIDE
  12. OCUVITE [Concomitant]
     Active Substance: VITAMINS
  13. KENALOG [Concomitant]
     Active Substance: TRIAMCINOLONE ACETONIDE
  14. ATENOLOL. [Concomitant]
     Active Substance: ATENOLOL
     Indication: PROPHYLAXIS
     Dates: start: 201602
  15. AVODART [Concomitant]
     Active Substance: DUTASTERIDE
  16. TYLENOL [Concomitant]
     Active Substance: ACETAMINOPHEN
     Indication: HEADACHE

REACTIONS (23)
  - Lymphadenopathy mediastinal [Unknown]
  - Drug ineffective [Unknown]
  - Atrial fibrillation [Unknown]
  - Weight decreased [Unknown]
  - Prostatomegaly [Recovered/Resolved]
  - Retroperitoneal lymphadenopathy [Unknown]
  - Presyncope [Unknown]
  - General physical health deterioration [Unknown]
  - Macular degeneration [Unknown]
  - Emphysema [Unknown]
  - Aortic valve sclerosis [Unknown]
  - Nausea [Unknown]
  - Aortic aneurysm [Unknown]
  - Coronary artery disease [Unknown]
  - Splenomegaly [Unknown]
  - Cardiac failure congestive [Recovered/Resolved]
  - Decreased appetite [Unknown]
  - Diverticulum intestinal [Unknown]
  - Mitral valve incompetence [Unknown]
  - Aortic valve incompetence [Unknown]
  - Pulmonary valve stenosis [Unknown]
  - Tricuspid valve incompetence [Unknown]
  - Hypotension [Not Recovered/Not Resolved]

NARRATIVE: CASE EVENT DATE: 20160101
